FAERS Safety Report 6931419-2 (Version None)
Quarter: 2010Q3

REPORT INFORMATION
  Report Type: 
  Country: None (occurrence: None)
  Receive Date: 20100819
  Receipt Date: 20100805
  Transmission Date: 20110219
  Serious: Yes (Hospitalization)
  Sender: FDA-Public Use
  Company Number: TR-ELI_LILLY_AND_COMPANY-TR201008002513

PATIENT
  Sex: Female

DRUGS (7)
  1. HUMULIN R [Suspect]
     Indication: GESTATIONAL DIABETES
     Dosage: 4 U, EACH MORNING
     Route: 058
     Dates: start: 20100501
  2. HUMULIN R [Suspect]
     Dosage: 6 U, EACH EVENING
     Route: 058
     Dates: start: 20100501
  3. HUMULIN R [Suspect]
     Dosage: 6 U, OTHER
     Route: 058
     Dates: start: 20100501
  4. HUMULIN N [Suspect]
     Indication: GESTATIONAL DIABETES
     Dosage: 6 U, DAILY (1/D)
     Route: 058
     Dates: start: 20100501
  5. CALCIUM                                 /N/A/ [Concomitant]
     Indication: SUPPLEMENTATION THERAPY
     Dosage: UNK, DAILY (1/D)
     Route: 065
     Dates: start: 20100401
  6. MAGNESIUM [Concomitant]
     Indication: SUPPLEMENTATION THERAPY
     Dosage: UNK, DAILY (1/D)
     Route: 065
     Dates: start: 20100401
  7. FERRO SANOL [Concomitant]
     Indication: SUPPLEMENTATION THERAPY
     Dosage: UNK, DAILY (1/D)
     Route: 065
     Dates: start: 20100401

REACTIONS (2)
  - ABDOMINAL PAIN [None]
  - DRUG EXPOSURE DURING PREGNANCY [None]
